FAERS Safety Report 23674972 (Version 1)
Quarter: 2024Q1

REPORT INFORMATION
  Report Type: Spontaneous
  Country: US (occurrence: US)
  Receive Date: 20240326
  Receipt Date: 20240326
  Transmission Date: 20240410
  Serious: Yes (Other)
  Sender: FDA-Public Use
  Company Number: US-SAMSUNG BIOEPIS-SB-2024-07944

PATIENT
  Sex: Female

DRUGS (1)
  1. RENFLEXIS [Suspect]
     Active Substance: INFLIXIMAB-ABDA
     Indication: Product used for unknown indication
     Route: 042

REACTIONS (5)
  - Pruritus [Recovered/Resolved]
  - Flushing [Recovered/Resolved]
  - Chest discomfort [Recovered/Resolved]
  - Sinus congestion [Recovered/Resolved]
  - Skin tightness [Recovered/Resolved]

NARRATIVE: CASE EVENT DATE: 20240307
